FAERS Safety Report 7416865-5 (Version None)
Quarter: 2011Q2

REPORT INFORMATION
  Report Type: 
  Country: None (occurrence: None)
  Receive Date: 20110407
  Receipt Date: 20110324
  Transmission Date: 20111010
  Serious: Yes (Life-Threatening)
  Sender: FDA-Public Use
  Company Number: JP-2011-10419

PATIENT
  Age: 81 Year
  Sex: Male

DRUGS (7)
  1. ACARDI (PIMOBENDAN) CAPSULE, 1.25MG MILLIGRAM(S) [Suspect]
     Indication: BRADYCARDIA
     Dosage: 2.5 MG MILLIGRAM(S), QD, ORAL
     Route: 048
     Dates: end: 20110221
  2. ALDACTONE [Concomitant]
  3. ZOLPIDEM TARTRATE [Concomitant]
  4. LANSOPRAZOLE [Suspect]
     Dosage: 30 MG MILLIGRAM(S), QD, ORAL
     Route: 048
     Dates: end: 20110221
  5. LASIX [Concomitant]
  6. LAXOBERON (SODIUM PICOSULFATE) [Concomitant]
  7. PLETAL [Suspect]
     Indication: BRADYCARDIA
     Dosage: 50 MG MILLIGRAM(S), BID, ORAL
     Route: 048
     Dates: end: 20110216

REACTIONS (4)
  - PYREXIA [None]
  - DEPRESSED LEVEL OF CONSCIOUSNESS [None]
  - AGRANULOCYTOSIS [None]
  - NEUTROPENIA [None]
